FAERS Safety Report 13545718 (Version 1)
Quarter: 2017Q2

REPORT INFORMATION
  Report Type: Spontaneous
  Country: CH (occurrence: CH)
  Receive Date: 20170515
  Receipt Date: 20170515
  Transmission Date: 20170830
  Serious: Yes (Hospitalization)
  Sender: FDA-Public Use
  Company Number: CH-JNJFOC-20170508199

PATIENT
  Age: 5 Decade
  Sex: Male

DRUGS (1)
  1. XEPLION [Suspect]
     Active Substance: PALIPERIDONE PALMITATE
     Indication: PRODUCT USED FOR UNKNOWN INDICATION
     Route: 030

REACTIONS (4)
  - Logorrhoea [Unknown]
  - Blood glucose increased [Unknown]
  - Weight increased [Unknown]
  - Psychotic symptom [Unknown]

NARRATIVE: CASE EVENT DATE: 201703
